FAERS Safety Report 13558669 (Version 1)
Quarter: 2017Q2

REPORT INFORMATION
  Report Type: Spontaneous
  Country: US (occurrence: US)
  Receive Date: 20170518
  Receipt Date: 20170518
  Transmission Date: 20170830
  Serious: Yes (Hospitalization)
  Sender: FDA-Public Use
  Company Number: None

PATIENT
  Age: 60 Year
  Sex: Male
  Weight: 68.8 kg

DRUGS (6)
  1. VINCRISTINE SULFATE. [Suspect]
     Active Substance: VINCRISTINE SULFATE
     Dates: end: 20170505
  2. DOXORUBICIN HYDROCHLORIDE. [Suspect]
     Active Substance: DOXORUBICIN HYDROCHLORIDE
     Dates: end: 20170505
  3. PREDNISONE. [Suspect]
     Active Substance: PREDNISONE
     Dates: end: 20170505
  4. RITUXIMAB (MOAB C2B2 ANTI CD20, CHIMERIC) [Suspect]
     Active Substance: RITUXIMAB
     Dates: end: 20170501
  5. ETOPOSIDE (VP-16) [Suspect]
     Active Substance: ETOPOSIDE
     Dates: end: 20170505
  6. CYCLOPHOSPHAMIDE. [Suspect]
     Active Substance: CYCLOPHOSPHAMIDE
     Dates: end: 20170505

REACTIONS (8)
  - Diarrhoea [None]
  - Perforation [None]
  - Constipation [None]
  - Flatulence [None]
  - Abdominal pain [None]
  - Pancytopenia [None]
  - Pyrexia [None]
  - Febrile neutropenia [None]

NARRATIVE: CASE EVENT DATE: 20170510
